FAERS Safety Report 5207338-9 (Version None)
Quarter: 2007Q1

REPORT INFORMATION
  Report Type: 
  Country: None (occurrence: None)
  Receive Date: 20070112
  Receipt Date: 20070112
  Transmission Date: 20070707
  Serious: Yes (Other)
  Sender: FDA-Public Use
  Company Number: US-GLAXOSMITHKLINE-A0635323A

PATIENT
  Age: 79 Year
  Sex: Female

DRUGS (13)
  1. CITRUCEL SUGAR-FREE SUSPENSION ORANGE [Suspect]
     Indication: GASTROINTESTINAL DISORDER
     Route: 048
  2. CLONAZEPAM [Suspect]
     Dosage: 1MG SEE DOSAGE TEXT
  3. TRAZODONE HCL [Suspect]
     Route: 065
  4. ASCORBIC ACID [Concomitant]
  5. MULTIPLE VITAMIN [Concomitant]
  6. ASPIRIN [Concomitant]
  7. CALCIUM [Concomitant]
  8. NORVASC [Concomitant]
  9. DIOVAN [Concomitant]
  10. LEVOXYL [Concomitant]
  11. FUROSAMIDE [Concomitant]
  12. CLARITIN [Concomitant]
  13. IMIPRAMINE [Concomitant]

REACTIONS (3)
  - HEPATIC ENZYME INCREASED [None]
  - LOSS OF CONSCIOUSNESS [None]
  - OVERDOSE [None]
